FAERS Safety Report 12597506 (Version 1)
Quarter: 2016Q3

REPORT INFORMATION
  Report Type: Spontaneous
  Country: US (occurrence: None)
  Receive Date: 20160726
  Receipt Date: 20160726
  Transmission Date: 20161109
  Serious: No
  Sender: FDA-Public Use
  Company Number: None

PATIENT

DRUGS (5)
  1. HUMALOG [Suspect]
     Active Substance: INSULIN LISPRO
  2. TOUJEO [Suspect]
     Active Substance: INSULIN GLARGINE
  3. LEVEMIR [Suspect]
     Active Substance: INSULIN DETEMIR
  4. METFORMIN [Suspect]
     Active Substance: METFORMIN HYDROCHLORIDE
  5. ELIQUIS [Suspect]
     Active Substance: APIXABAN

REACTIONS (10)
  - Blood pressure abnormal [None]
  - Aspiration [None]
  - Blood glucose increased [None]
  - Eating disorder [None]
  - Neoplasm malignant [None]
  - Cardiac arrest [None]
  - Unresponsive to stimuli [None]
  - Fall [None]
  - Haemorrhage [None]
  - Stress [None]
